FAERS Safety Report 10257527 (Version 1)
Quarter: 2014Q2

REPORT INFORMATION
  Report Type: Spontaneous
  Country: US (occurrence: US)
  Receive Date: 20140625
  Receipt Date: 20140625
  Transmission Date: 20141212
  Serious: No
  Sender: FDA-Public Use
  Company Number: US-GLAXOSMITHKLINE-A1064885A

PATIENT
  Age: 78 Year
  Sex: Female

DRUGS (6)
  1. VERAMYST [Suspect]
     Indication: RESPIRATORY DISORDER
     Dosage: 4SPR PER DAY
     Route: 045
     Dates: start: 20140312
  2. GUAIFENESIN [Concomitant]
  3. UNSPECIFIED MEDICATION [Concomitant]
  4. METOPROLOL [Concomitant]
  5. LOSARTAN [Concomitant]
  6. SIMVASTATIN [Concomitant]

REACTIONS (2)
  - Chest pain [Recovering/Resolving]
  - Product quality issue [Unknown]
